FAERS Safety Report 8883922 (Version 1)
Quarter: 2012Q4

REPORT INFORMATION
  Report Type: 
  Country: US (occurrence: US)
  Receive Date: 20121102
  Receipt Date: 20121102
  Transmission Date: 20130627
  Serious: No
  Sender: FDA-Public Use
  Company Number: US-ASTRAZENECA-2012SE24455

PATIENT
  Age: 48 Year
  Sex: Female
  Weight: 82.6 kg

DRUGS (11)
  1. CRESTOR [Suspect]
     Indication: BLOOD CHOLESTEROL INCREASED
     Route: 048
     Dates: start: 201111
  2. TOPAMAX [Suspect]
     Indication: MIGRAINE
     Route: 065
  3. MELOXICAM [Concomitant]
  4. VALIUM [Concomitant]
  5. ASPIRIN [Concomitant]
  6. OXYBUTYNIN [Concomitant]
  7. CALCIUM [Concomitant]
  8. VITAMIN D [Concomitant]
  9. HYDROCODONE [Concomitant]
     Indication: PAIN
  10. RAMIPRIL [Concomitant]
     Indication: BLOOD PRESSURE
  11. NEURONTIN [Concomitant]

REACTIONS (9)
  - Burning sensation [Unknown]
  - Hypoaesthesia [Recovered/Resolved]
  - Fall [Unknown]
  - Paraesthesia [Recovered/Resolved]
  - Arthritis [Unknown]
  - Visual acuity reduced [Unknown]
  - Weight decreased [Unknown]
  - Myalgia [Not Recovered/Not Resolved]
  - Arthralgia [Unknown]
